FAERS Safety Report 25866272 (Version 1)
Quarter: 2025Q3

REPORT INFORMATION
  Report Type: Report from Study
  Country: KR (occurrence: KR)
  Receive Date: 20250930
  Receipt Date: 20250930
  Transmission Date: 20251020
  Serious: Yes (Other)
  Sender: MYLAN
  Company Number: KR-MYLANLABS-2025M1082959

PATIENT
  Sex: Male
  Weight: 72.8 kg

DRUGS (48)
  1. PREGABALIN [Suspect]
     Active Substance: PREGABALIN
     Indication: Neuropathy peripheral
     Dates: start: 20201020, end: 20210928
  2. PREGABALIN [Suspect]
     Active Substance: PREGABALIN
     Route: 048
     Dates: start: 20201020, end: 20210928
  3. PREGABALIN [Suspect]
     Active Substance: PREGABALIN
     Route: 048
     Dates: start: 20201020, end: 20210928
  4. PREGABALIN [Suspect]
     Active Substance: PREGABALIN
     Dates: start: 20201020, end: 20210928
  5. CILOSTAZOL [Concomitant]
     Active Substance: CILOSTAZOL
  6. CILOSTAZOL [Concomitant]
     Active Substance: CILOSTAZOL
     Route: 048
  7. CILOSTAZOL [Concomitant]
     Active Substance: CILOSTAZOL
     Route: 048
  8. CILOSTAZOL [Concomitant]
     Active Substance: CILOSTAZOL
  9. ATORVASTATIN CALCIUM [Concomitant]
     Active Substance: ATORVASTATIN CALCIUM
  10. ATORVASTATIN CALCIUM [Concomitant]
     Active Substance: ATORVASTATIN CALCIUM
     Route: 048
  11. ATORVASTATIN CALCIUM [Concomitant]
     Active Substance: ATORVASTATIN CALCIUM
     Route: 048
  12. ATORVASTATIN CALCIUM [Concomitant]
     Active Substance: ATORVASTATIN CALCIUM
  13. OMEGA-3-ACID ETHYL ESTER [Concomitant]
     Active Substance: OMEGA-3-ACID ETHYL ESTERS
  14. OMEGA-3-ACID ETHYL ESTER [Concomitant]
     Active Substance: OMEGA-3-ACID ETHYL ESTERS
     Route: 048
  15. OMEGA-3-ACID ETHYL ESTER [Concomitant]
     Active Substance: OMEGA-3-ACID ETHYL ESTERS
     Route: 048
  16. OMEGA-3-ACID ETHYL ESTER [Concomitant]
     Active Substance: OMEGA-3-ACID ETHYL ESTERS
  17. FENOFIBRATE [Concomitant]
     Active Substance: FENOFIBRATE
     Dates: start: 20160516, end: 20210111
  18. FENOFIBRATE [Concomitant]
     Active Substance: FENOFIBRATE
     Route: 048
     Dates: start: 20160516, end: 20210111
  19. FENOFIBRATE [Concomitant]
     Active Substance: FENOFIBRATE
     Route: 048
     Dates: start: 20160516, end: 20210111
  20. FENOFIBRATE [Concomitant]
     Active Substance: FENOFIBRATE
     Dates: start: 20160516, end: 20210111
  21. METFORMIN HYDROCHLORIDE\SITAGLIPTIN PHOSPHATE [Concomitant]
     Active Substance: METFORMIN HYDROCHLORIDE\SITAGLIPTIN PHOSPHATE
  22. METFORMIN HYDROCHLORIDE\SITAGLIPTIN PHOSPHATE [Concomitant]
     Active Substance: METFORMIN HYDROCHLORIDE\SITAGLIPTIN PHOSPHATE
     Route: 048
  23. METFORMIN HYDROCHLORIDE\SITAGLIPTIN PHOSPHATE [Concomitant]
     Active Substance: METFORMIN HYDROCHLORIDE\SITAGLIPTIN PHOSPHATE
     Route: 048
  24. METFORMIN HYDROCHLORIDE\SITAGLIPTIN PHOSPHATE [Concomitant]
     Active Substance: METFORMIN HYDROCHLORIDE\SITAGLIPTIN PHOSPHATE
  25. FLUOROMETHOLONE [Concomitant]
     Active Substance: FLUOROMETHOLONE
  26. FLUOROMETHOLONE [Concomitant]
     Active Substance: FLUOROMETHOLONE
     Route: 047
  27. FLUOROMETHOLONE [Concomitant]
     Active Substance: FLUOROMETHOLONE
     Route: 047
  28. FLUOROMETHOLONE [Concomitant]
     Active Substance: FLUOROMETHOLONE
  29. ZALTOPROFEN [Concomitant]
     Active Substance: ZALTOPROFEN
     Dates: start: 20210216, end: 20210220
  30. ZALTOPROFEN [Concomitant]
     Active Substance: ZALTOPROFEN
     Route: 048
     Dates: start: 20210216, end: 20210220
  31. ZALTOPROFEN [Concomitant]
     Active Substance: ZALTOPROFEN
     Route: 048
     Dates: start: 20210216, end: 20210220
  32. ZALTOPROFEN [Concomitant]
     Active Substance: ZALTOPROFEN
     Dates: start: 20210216, end: 20210220
  33. LAFUTIDINE [Concomitant]
     Active Substance: LAFUTIDINE
     Dates: start: 20210216, end: 20210220
  34. LAFUTIDINE [Concomitant]
     Active Substance: LAFUTIDINE
     Route: 048
     Dates: start: 20210216, end: 20210220
  35. LAFUTIDINE [Concomitant]
     Active Substance: LAFUTIDINE
     Route: 048
     Dates: start: 20210216, end: 20210220
  36. LAFUTIDINE [Concomitant]
     Active Substance: LAFUTIDINE
     Dates: start: 20210216, end: 20210220
  37. CEFDINIR [Concomitant]
     Active Substance: CEFDINIR
     Dates: start: 20210216, end: 20210220
  38. CEFDINIR [Concomitant]
     Active Substance: CEFDINIR
     Route: 048
     Dates: start: 20210216, end: 20210220
  39. CEFDINIR [Concomitant]
     Active Substance: CEFDINIR
     Route: 048
     Dates: start: 20210216, end: 20210220
  40. CEFDINIR [Concomitant]
     Active Substance: CEFDINIR
     Dates: start: 20210216, end: 20210220
  41. GLIMEPIRIDE [Concomitant]
     Active Substance: GLIMEPIRIDE
  42. GLIMEPIRIDE [Concomitant]
     Active Substance: GLIMEPIRIDE
     Route: 048
  43. GLIMEPIRIDE [Concomitant]
     Active Substance: GLIMEPIRIDE
     Route: 048
  44. GLIMEPIRIDE [Concomitant]
     Active Substance: GLIMEPIRIDE
  45. LYRICA [Concomitant]
     Active Substance: PREGABALIN
     Dates: start: 20160526, end: 20201019
  46. LYRICA [Concomitant]
     Active Substance: PREGABALIN
     Route: 048
     Dates: start: 20160526, end: 20201019
  47. LYRICA [Concomitant]
     Active Substance: PREGABALIN
     Route: 048
     Dates: start: 20160526, end: 20201019
  48. LYRICA [Concomitant]
     Active Substance: PREGABALIN
     Dates: start: 20160526, end: 20201019

REACTIONS (1)
  - Vitreous haemorrhage [Recovering/Resolving]

NARRATIVE: CASE EVENT DATE: 20210209
